FAERS Safety Report 16499187 (Version 1)
Quarter: 2019Q3

REPORT INFORMATION
  Report Type: Spontaneous
  Country: US (occurrence: US)
  Receive Date: 20190701
  Receipt Date: 20190701
  Transmission Date: 20191004
  Serious: Yes (Hospitalization)
  Sender: FDA-Public Use
  Company Number: US-ROCHE-2346610

PATIENT
  Sex: Female

DRUGS (12)
  1. ESBRIET [Suspect]
     Active Substance: PIRFENIDONE
     Indication: IDIOPATHIC PULMONARY FIBROSIS
     Dosage: 2 CAP 3 TIMES IN A DAY.
     Route: 048
  2. MAGNESIUM [Concomitant]
     Active Substance: MAGNESIUM
  3. FORTEO [Concomitant]
     Active Substance: TERIPARATIDE
  4. CALTRATE [CALCIUM CARBONATE;COLECALCIFEROL] [Concomitant]
  5. LANTUS [Concomitant]
     Active Substance: INSULIN GLARGINE
  6. METFORMIN HCL [Concomitant]
     Active Substance: METFORMIN HYDROCHLORIDE
  7. NOVOLOG [Concomitant]
     Active Substance: INSULIN ASPART
  8. FUROSEMIDE. [Concomitant]
     Active Substance: FUROSEMIDE
  9. POTASSIUM [Concomitant]
     Active Substance: POTASSIUM
  10. VITAMIN D3 [Concomitant]
     Active Substance: CHOLECALCIFEROL
  11. GABAPENTIN. [Concomitant]
     Active Substance: GABAPENTIN
  12. ACETAMINOPHEN. [Concomitant]
     Active Substance: ACETAMINOPHEN

REACTIONS (1)
  - Pyrexia [Unknown]
